FAERS Safety Report 6360102-X (Version None)
Quarter: 2009Q3

REPORT INFORMATION
  Report Type: 
  Country: None (occurrence: None)
  Receive Date: 20090917
  Receipt Date: 20090911
  Transmission Date: 20100115
  Serious: Yes (Death, Other)
  Sender: FDA-Public Use
  Company Number: PHHY2009LB39773

PATIENT
  Sex: Female

DRUGS (5)
  1. LEPONEX [Suspect]
     Indication: SCHIZOPHRENIA
     Dosage: 100 MG, BID
     Dates: start: 20050306
  2. LITHIUM [Suspect]
  3. ELTROXIN [Concomitant]
  4. ARTANE [Concomitant]
  5. FOLIC ACID [Concomitant]

REACTIONS (7)
  - BLOOD CREATININE DECREASED [None]
  - CONSTIPATION [None]
  - FLATULENCE [None]
  - HYPOGLYCAEMIA [None]
  - HYPOTENSION [None]
  - SEPTIC SHOCK [None]
  - WHITE BLOOD CELL COUNT DECREASED [None]
